FAERS Safety Report 17939460 (Version 1)
Quarter: 2020Q2

REPORT INFORMATION
  Report Type: Spontaneous
  Country: US (occurrence: US)
  Receive Date: 20200625
  Receipt Date: 20200625
  Transmission Date: 20200714
  Serious: Yes (Hospitalization, Other)
  Sender: FDA-Public Use
  Company Number: US-MICRO LABS LIMITED-ML2020-01898

PATIENT
  Age: 8 Month
  Sex: Male

DRUGS (4)
  1. QUININE [Suspect]
     Active Substance: QUININE
  2. CLINDAMYCIN. [Suspect]
     Active Substance: CLINDAMYCIN
     Indication: BABESIOSIS
  3. ATOVAQUONE. [Suspect]
     Active Substance: ATOVAQUONE
  4. AZITHROMYCIN ANHYDROUS. [Suspect]
     Active Substance: AZITHROMYCIN ANHYDROUS

REACTIONS (2)
  - Foetal exposure during pregnancy [Unknown]
  - Acute myeloid leukaemia [Unknown]
